FAERS Safety Report 6284079-0 (Version None)
Quarter: 2009Q3

REPORT INFORMATION
  Report Type: 
  Country: None (occurrence: None)
  Receive Date: 20090727
  Receipt Date: 20090713
  Transmission Date: 20100115
  Serious: Yes (Disabling)
  Sender: FDA-Public Use
  Company Number: IT-ELI_LILLY_AND_COMPANY-IT200907002331

PATIENT
  Sex: Male

DRUGS (3)
  1. BYETTA [Suspect]
     Indication: TYPE 2 DIABETES MELLITUS
     Dosage: 20 UG, DAILY (1/D)
     Route: 058
     Dates: start: 20081111
  2. GLIBOMET [Concomitant]
     Dosage: GLIBENCLAMIDE 400MG + METFORMIN 2.5MG
     Route: 048
     Dates: start: 20030818
  3. METFORAL [Concomitant]
     Dosage: 850 MG, UNKNOWN
     Route: 048
     Dates: start: 20040226

REACTIONS (1)
  - BLUE TOE SYNDROME [None]
